FAERS Safety Report 4767996-X (Version None)
Quarter: 2005Q3

REPORT INFORMATION
  Report Type: 
  Country: None (occurrence: None)
  Receive Date: 20050912
  Receipt Date: 20050902
  Transmission Date: 20060218
  Serious: Yes (Other)
  Sender: FDA-Public Use
  Company Number: 200512958BCC

PATIENT
  Sex: Male

DRUGS (2)
  1. ALEVE [Suspect]
  2. ASPIRIN [Suspect]

REACTIONS (1)
  - UNEVALUABLE EVENT [None]
